FAERS Safety Report 4393305-4 (Version None)
Quarter: 2004Q3

REPORT INFORMATION
  Report Type: 
  Country: None (occurrence: None)
  Receive Date: 20040701
  Receipt Date: 20040616
  Transmission Date: 20050211
  Serious: Yes (Death, Other)
  Sender: FDA-Public Use
  Company Number: CA_040607021

PATIENT
  Age: 67 Year
  Sex: Male
  Weight: 73 kg

DRUGS (12)
  1. PROZAC [Suspect]
     Indication: AGITATION
     Dosage: 20 MG/1 DAY
     Dates: start: 20030523, end: 20030603
  2. CELEXA [Concomitant]
  3. NADOLOL [Concomitant]
  4. NORVASC [Concomitant]
  5. HYTRIN [Concomitant]
  6. ZOCOR [Concomitant]
  7. ALLOPURINOL [Concomitant]
  8. IMOVANE (ZOPICLONE) [Concomitant]
  9. CLONAZEPAM [Concomitant]
  10. VITAMIN E [Concomitant]
  11. NITROLINGUAL-PUMPSPRAY (GLYCERYL TRINITRATE) [Concomitant]
  12. METRONIDAZOLE [Concomitant]

REACTIONS (27)
  - AFFECT LABILITY [None]
  - ANOREXIA [None]
  - ANXIETY [None]
  - COMPLETED SUICIDE [None]
  - CONFUSIONAL STATE [None]
  - CORONARY ARTERY DISEASE [None]
  - DEMENTIA ALZHEIMER'S TYPE [None]
  - DISTURBANCE IN ATTENTION [None]
  - FEAR [None]
  - FEELING ABNORMAL [None]
  - FEELING OF DESPAIR [None]
  - HALLUCINATION, VISUAL [None]
  - HEART RATE ABNORMAL [None]
  - HYPERHIDROSIS [None]
  - ILLUSION [None]
  - IMPULSIVE BEHAVIOUR [None]
  - JUDGEMENT IMPAIRED [None]
  - LABILE BLOOD PRESSURE [None]
  - LOOSE ASSOCIATIONS [None]
  - NAUSEA [None]
  - PERSONALITY CHANGE [None]
  - PSYCHOMOTOR AGITATION [None]
  - PSYCHOTIC DISORDER DUE TO A GENERAL MEDICAL CONDITION [None]
  - SELF INJURIOUS BEHAVIOUR [None]
  - SERUM SEROTONIN INCREASED [None]
  - TEMPORAL LOBE EPILEPSY [None]
  - TREATMENT NONCOMPLIANCE [None]
